FAERS Safety Report 5153248-5 (Version None)
Quarter: 2006Q4

REPORT INFORMATION
  Report Type: 
  Country: None (occurrence: None)
  Receive Date: 20061117
  Receipt Date: 20061009
  Transmission Date: 20070319
  Serious: Yes (Hospitalization)
  Sender: FDA-Public Use
  Company Number: US-ROCHE-466960

PATIENT
  Age: 26 Year
  Sex: Female
  Weight: 56.7 kg

DRUGS (3)
  1. ACCUTANE [Suspect]
     Route: 048
     Dates: start: 19950118, end: 19950415
  2. ACCUTANE [Suspect]
     Route: 048
     Dates: start: 19950915, end: 19951115
  3. ORAL CONTRACEPTIVE NOS [Concomitant]
     Route: 048

REACTIONS (13)
  - ANAEMIA [None]
  - ANXIETY [None]
  - CERVICAL DYSPLASIA [None]
  - COLITIS ULCERATIVE [None]
  - CROHN'S DISEASE [None]
  - CYST [None]
  - DEPRESSION [None]
  - FEMALE GENITAL TRACT FISTULA [None]
  - HYPOKALAEMIA [None]
  - INSOMNIA [None]
  - LARGE INTESTINE PERFORATION [None]
  - MALNUTRITION [None]
  - SMEAR CERVIX ABNORMAL [None]
